FAERS Safety Report 22735155 (Version 4)
Quarter: 2024Q3

REPORT INFORMATION
  Report Type: Spontaneous
  Country: JP (occurrence: JP)
  Receive Date: 20230721
  Receipt Date: 20240909
  Transmission Date: 20241017
  Serious: Yes (Death, Other)
  Sender: ASTELLAS
  Company Number: JP-ASTELLAS-2023JP008595

PATIENT
  Age: 85 Year
  Sex: Male

DRUGS (2)
  1. XTANDI [Suspect]
     Active Substance: ENZALUTAMIDE
     Indication: Prostate cancer metastatic
     Route: 048
     Dates: start: 20230714, end: 20230718
  2. XTANDI [Suspect]
     Active Substance: ENZALUTAMIDE
     Indication: Metastases to bone

REACTIONS (1)
  - Interstitial lung disease [Fatal]

NARRATIVE: CASE EVENT DATE: 20230718
